FAERS Safety Report 4572014-2 (Version None)
Quarter: 2005Q1

REPORT INFORMATION
  Report Type: 
  Country: None (occurrence: None)
  Receive Date: 20050202
  Receipt Date: 20050118
  Transmission Date: 20050727
  Serious: Yes (Other)
  Sender: FDA-Public Use
  Company Number: US_0501110434

PATIENT
  Sex: Female

DRUGS (2)
  1. GEMZAR [Suspect]
     Indication: BREAST CANCER
     Dosage: 1000 MG/M2 OTHER
     Route: 050
  2. ISCADOR (VISCUM ALBUM EXTRACT) [Concomitant]

REACTIONS (4)
  - RASH MACULO-PAPULAR [None]
  - SCAR [None]
  - SKIN DISCOLOURATION [None]
  - TYPE IV HYPERSENSITIVITY REACTION [None]
